FAERS Safety Report 8041451-6 (Version None)
Quarter: 2012Q1

REPORT INFORMATION
  Report Type: 
  Country: None (occurrence: None)
  Receive Date: 20120112
  Receipt Date: 20120110
  Transmission Date: 20120608
  Serious: Yes (Other)
  Sender: FDA-Public Use
  Company Number: US-PFIZER INC-2012008304

PATIENT
  Age: 41 Year
  Sex: Male
  Weight: 94.33 kg

DRUGS (8)
  1. LIPITOR [Suspect]
     Dosage: UNK, DAILY
     Route: 048
     Dates: start: 20111201
  2. LIPITOR [Suspect]
     Indication: BLOOD CHOLESTEROL INCREASED
     Dosage: UNK, TWO TIMES A DAY
     Route: 048
     Dates: start: 20111201
  3. ASPIRIN [Concomitant]
     Indication: MYOCARDIAL INFARCTION
     Dosage: UNK
  4. NOVOLOG [Concomitant]
     Indication: DIABETES MELLITUS
     Dosage: UNK
  5. GAVISCON [Concomitant]
     Indication: HYPERCHLORHYDRIA
     Dosage: UNK, AS NEEDED
  6. METOPROLOL [Concomitant]
     Indication: HYPERTENSION
     Dosage: UNK
  7. LEVEMIR [Concomitant]
     Indication: DIABETES MELLITUS
     Dosage: UNK
  8. PROTONIX [Concomitant]
     Indication: HYPERCHLORHYDRIA
     Dosage: UNK, AS NEEDED

REACTIONS (3)
  - GAIT DISTURBANCE [None]
  - DRUG ADMINISTRATION ERROR [None]
  - MYALGIA [None]
